FAERS Safety Report 24182636 (Version 4)
Quarter: 2025Q3

REPORT INFORMATION
  Report Type: Report from Study
  Country: ZA (occurrence: ZA)
  Receive Date: 20240807
  Receipt Date: 20250815
  Transmission Date: 20251020
  Serious: Yes (Hospitalization, Other)
  Sender: TAKEDA
  Company Number: ZA-TAKEDA-2024TUS078415

PATIENT
  Sex: Male

DRUGS (2)
  1. VEDOLIZUMAB [Suspect]
     Active Substance: VEDOLIZUMAB
     Indication: Crohn^s disease
  2. VEDOLIZUMAB [Suspect]
     Active Substance: VEDOLIZUMAB

REACTIONS (4)
  - Crohn^s disease [Not Recovered/Not Resolved]
  - Campylobacter gastroenteritis [Unknown]
  - Salmonellosis [Unknown]
  - Inappropriate schedule of product administration [Recovered/Resolved]
